FAERS Safety Report 4485018-5 (Version None)
Quarter: 2004Q3

REPORT INFORMATION
  Report Type: 
  Country: None (occurrence: None)
  Receive Date: 20040921
  Receipt Date: 20030908
  Transmission Date: 20050211
  Serious: Yes (Death, Hospitalization)
  Sender: FDA-Public Use
  Company Number: 163-20785-03090223

PATIENT
  Age: 63 Year
  Sex: Female

DRUGS (7)
  1. THALOMID [Suspect]
     Indication: OVARIAN CANCER
     Dosage: 200 MG, QHS, ORAL
     Route: 048
     Dates: start: 20030904, end: 20030912
  2. GLUCOVANCE                       (GLIBOMET) [Concomitant]
  3. COLACE           (DOCUSATE SODIUM) [Concomitant]
  4. MS04 (MORPHINE SULFATE) [Concomitant]
  5. VICODIN [Concomitant]
  6. ALBUTEROL [Concomitant]
  7. OXYCODONE (OXYCODONE) [Concomitant]

REACTIONS (6)
  - ABDOMINAL PAIN [None]
  - ASCITES [None]
  - DEATH [None]
  - DISEASE PROGRESSION [None]
  - JOINT SWELLING [None]
  - RESPIRATORY DISORDER [None]
